FAERS Safety Report 6583157-6 (Version None)
Quarter: 2010Q1

REPORT INFORMATION
  Report Type: 
  Country: None (occurrence: None)
  Receive Date: 20100216
  Receipt Date: 20100205
  Transmission Date: 20100710
  Serious: Yes (Other)
  Sender: FDA-Public Use
  Company Number: US-AMGEN-QUU390954

PATIENT
  Sex: Female

DRUGS (6)
  1. ARANESP [Suspect]
     Indication: RENAL FAILURE CHRONIC
  2. RENAGEL [Concomitant]
  3. CELLCEPT [Concomitant]
  4. COREG [Concomitant]
  5. WARFARIN SODIUM [Concomitant]
  6. PREDNISONE [Concomitant]

REACTIONS (1)
  - HAEMOGLOBIN DECREASED [None]
